FAERS Safety Report 19984590 (Version 1)
Quarter: 2021Q4

REPORT INFORMATION
  Report Type: Spontaneous
  Country: US (occurrence: US)
  Receive Date: 20211020
  Receipt Date: 20211020
  Transmission Date: 20220303
  Serious: No
  Sender: FDA-Public Use
  Company Number: None

PATIENT
  Age: 87 Year
  Sex: Male

DRUGS (20)
  1. ABIRATERONE [Suspect]
     Active Substance: ABIRATERONE
     Indication: Prostate cancer
     Route: 048
     Dates: start: 20210825, end: 20211004
  2. PREDNISONE [Suspect]
     Active Substance: PREDNISONE
     Indication: Prostate cancer
     Route: 048
     Dates: start: 20210825, end: 20211004
  3. PREDNISONE [Suspect]
     Active Substance: PREDNISONE
     Indication: Prostate cancer
     Route: 048
     Dates: start: 20210825, end: 20211004
  4. ASPIRIN [Concomitant]
     Active Substance: ASPIRIN
  5. CALCIUM [Concomitant]
     Active Substance: CALCIUM
  6. FENTANYL [Concomitant]
     Active Substance: FENTANYL
  7. FLONASE [Concomitant]
     Active Substance: FLUTICASONE PROPIONATE
  8. GLUCOSAMINE [Concomitant]
     Active Substance: GLUCOSAMINE
  9. ALBUTEROL\IPRATROPIUM [Concomitant]
     Active Substance: ALBUTEROL\IPRATROPIUM
  10. ISOSRBIDE MONONTRATE [Concomitant]
  11. LINZESS [Concomitant]
     Active Substance: LINACLOTIDE
  12. LOSARTAN [Concomitant]
     Active Substance: LOSARTAN
  13. LUPRON [Concomitant]
     Active Substance: LEUPROLIDE ACETATE
  14. LYRICA [Concomitant]
     Active Substance: PREGABALIN
  15. METOPROLOL [Concomitant]
     Active Substance: METOPROLOL
  16. MIRALAX [Concomitant]
     Active Substance: POLYETHYLENE GLYCOL 3350
  17. ACETAMINOPHEN\OXYCODONE HYDROCHLORIDE [Concomitant]
     Active Substance: ACETAMINOPHEN\OXYCODONE HYDROCHLORIDE
  18. SIMVASTATIN [Concomitant]
     Active Substance: SIMVASTATIN
  19. TRICOR [Concomitant]
     Active Substance: FENOFIBRATE
  20. VITAMIN D3 [Concomitant]
     Active Substance: CHOLECALCIFEROL

REACTIONS (1)
  - Seizure like phenomena [None]

NARRATIVE: CASE EVENT DATE: 20211019
